FAERS Safety Report 13366198 (Version 2)
Quarter: 2017Q2

REPORT INFORMATION
  Report Type: Spontaneous
  Country: US (occurrence: US)
  Receive Date: 20170323
  Receipt Date: 20170427
  Transmission Date: 20170830
  Serious: No
  Sender: FDA-Public Use
  Company Number: US-SHIRE-US201706615

PATIENT
  Sex: Female
  Weight: 48.98 kg

DRUGS (1)
  1. XIIDRA [Suspect]
     Active Substance: LIFITEGRAST
     Indication: DRY EYE
     Dosage: 1 GTT( IN BOTH EYES), 2X/DAY:BID
     Route: 047
     Dates: start: 20170131

REACTIONS (6)
  - Instillation site reaction [Recovered/Resolved]
  - Instillation site lacrimation [Not Recovered/Not Resolved]
  - Visual acuity reduced [Not Recovered/Not Resolved]
  - Instillation site foreign body sensation [Recovered/Resolved]
  - Dysgeusia [Not Recovered/Not Resolved]
  - Instillation site pain [Not Recovered/Not Resolved]
